FAERS Safety Report 13172639 (Version 1)
Quarter: 2017Q1

REPORT INFORMATION
  Report Type: Spontaneous
  Country: US (occurrence: US)
  Receive Date: 20170131
  Receipt Date: 20170131
  Transmission Date: 20170428
  Serious: Yes (Death)
  Sender: FDA-Public Use
  Company Number: US-OTSUKA-2017_002019

PATIENT
  Sex: Male

DRUGS (2)
  1. BUSULFEX [Suspect]
     Active Substance: BUSULFAN
     Indication: STEM CELL TRANSPLANT
     Dosage: 3.2 MG/KG OR 4 MG/ KG ON DAY -8 AND -7, AS EIGHT DOSES ON A 6-H SCHEDULE
     Route: 042
  2. FLUDARABINE [Suspect]
     Active Substance: FLUDARABINE PHOSPHATE
     Indication: STEM CELL TRANSPLANT
     Dosage: 200 MG/M2 (40 MG/M2/DAY), QD
     Route: 065

REACTIONS (1)
  - Pneumonitis [Fatal]
